FAERS Safety Report 6192659-6 (Version None)
Quarter: 2009Q2

REPORT INFORMATION
  Report Type: 
  Country: None (occurrence: None)
  Receive Date: 20090518
  Receipt Date: 20090506
  Transmission Date: 20091009
  Serious: Yes (Other)
  Sender: FDA-Public Use
  Company Number: US-ROCHE-627738

PATIENT
  Sex: Female
  Weight: 99.9 kg

DRUGS (10)
  1. XELODA [Suspect]
     Route: 048
     Dates: start: 20080915
  2. XELODA [Suspect]
     Dosage: TAKES 1500 MG IN AM AND 1000 MG IN PM
     Route: 048
     Dates: end: 20090430
  3. PRILOSEC [Concomitant]
     Dates: start: 20050101
  4. MULTI-VITAMIN [Concomitant]
  5. LISINOPRIL [Concomitant]
  6. VITAMIN-MINERAL COMPOUND TAB [Concomitant]
     Dosage: STRENGTH REPORTED AS: 226 MG-200 UNIT-5 MG CAP
  7. HYDROCHLOROTHIAZIDE [Concomitant]
  8. NORVASC [Concomitant]
  9. LEVAQUIN [Concomitant]
     Dosage: ONE TABLET DAILY X 14 DAYS
  10. ACYCLOVIR [Concomitant]

REACTIONS (4)
  - APHTHOUS STOMATITIS [None]
  - DISEASE PROGRESSION [None]
  - DYSPEPSIA [None]
  - VITAMIN D DEFICIENCY [None]
